FAERS Safety Report 5761862-9 (Version None)
Quarter: 2008Q2

REPORT INFORMATION
  Report Type: 
  Country: None (occurrence: None)
  Receive Date: 20080603
  Receipt Date: 20080520
  Transmission Date: 20081010
  Serious: Yes (Death)
  Sender: FDA-Public Use
  Company Number: 2008AL005575

PATIENT
  Age: 78 Year
  Sex: Male
  Weight: 84.8226 kg

DRUGS (1)
  1. DIGOXIN [Suspect]
     Indication: CORONARY ARTERY DISEASE
     Dosage: 0.125MG PO DAILY
     Route: 048

REACTIONS (7)
  - BALANCE DISORDER [None]
  - BLOOD GLUCOSE DECREASED [None]
  - DECREASED APPETITE [None]
  - DIZZINESS [None]
  - HEART RATE IRREGULAR [None]
  - HYPOTENSION [None]
  - RESPIRATORY DISTRESS [None]
